FAERS Safety Report 9897563 (Version 1)
Quarter: 2014Q1

REPORT INFORMATION
  Report Type: Report from Study
  Country: US (occurrence: US)
  Receive Date: 20140214
  Receipt Date: 20140214
  Transmission Date: 20141002
  Serious: Yes (Other)
  Sender: FDA-Public Use
  Company Number: US-ALEXION-A201202788

PATIENT
  Sex: Female

DRUGS (1)
  1. SOLIRIS [Suspect]
     Indication: NEUROMYOPATHY
     Dosage: UNK
     Route: 042
     Dates: start: 20121008

REACTIONS (1)
  - Neuromyopathy [Unknown]
